FAERS Safety Report 13065320 (Version 2)
Quarter: 2017Q1

REPORT INFORMATION
  Report Type: Spontaneous
  Country: US (occurrence: US)
  Receive Date: 20161227
  Receipt Date: 20170324
  Transmission Date: 20170428
  Serious: No
  Sender: FDA-Public Use
  Company Number: US-UNICHEM LABORATORIES LIMITED-UCM201611-000255

PATIENT
  Sex: Female
  Weight: 75.75 kg

DRUGS (16)
  1. DULOXETINE. [Suspect]
     Active Substance: DULOXETINE
     Indication: NERVE COMPRESSION
  2. DULOXETINE. [Suspect]
     Active Substance: DULOXETINE
     Indication: SCOLIOSIS
  3. GABAPENTIN. [Suspect]
     Active Substance: GABAPENTIN
     Indication: BACK PAIN
     Dates: start: 201510, end: 2016
  4. LYRICA [Suspect]
     Active Substance: PREGABALIN
     Indication: ARTHRITIS
     Route: 048
     Dates: start: 2016
  5. TIZANIDINE. [Suspect]
     Active Substance: TIZANIDINE
     Indication: MUSCLE RELAXANT THERAPY
  6. MELOXICAM. [Suspect]
     Active Substance: MELOXICAM
     Indication: ARTHRITIS
     Dates: start: 2016
  7. MELOXICAM. [Suspect]
     Active Substance: MELOXICAM
     Indication: SCOLIOSIS
  8. MELOXICAM. [Suspect]
     Active Substance: MELOXICAM
     Indication: NERVE COMPRESSION
  9. NORCO [Suspect]
     Active Substance: ACETAMINOPHEN\HYDROCODONE BITARTRATE
     Indication: ARTHRITIS
  10. LYRICA [Suspect]
     Active Substance: PREGABALIN
     Indication: SCOLIOSIS
     Dates: start: 201611
  11. LYRICA [Suspect]
     Active Substance: PREGABALIN
     Indication: NERVE COMPRESSION
  12. NORCO [Suspect]
     Active Substance: ACETAMINOPHEN\HYDROCODONE BITARTRATE
     Indication: BACK PAIN
     Dates: start: 201301
  13. NORCO [Suspect]
     Active Substance: ACETAMINOPHEN\HYDROCODONE BITARTRATE
     Indication: SCOLIOSIS
  14. AMBIEN [Suspect]
     Active Substance: ZOLPIDEM TARTRATE
     Indication: SLEEP DISORDER
     Dates: start: 201606
  15. DULOXETINE. [Suspect]
     Active Substance: DULOXETINE
     Indication: ARTHRITIS
     Dates: start: 201601
  16. NORCO [Suspect]
     Active Substance: ACETAMINOPHEN\HYDROCODONE BITARTRATE
     Indication: NERVE COMPRESSION

REACTIONS (7)
  - Feeling abnormal [Unknown]
  - Disturbance in attention [Unknown]
  - Insomnia [Unknown]
  - Oral discomfort [Unknown]
  - Muscle twitching [Unknown]
  - Tongue movement disturbance [Unknown]
  - Drug ineffective [Unknown]
